FAERS Safety Report 20575295 (Version 1)
Quarter: 2022Q1

REPORT INFORMATION
  Report Type: Spontaneous
  Country: RU (occurrence: RU)
  Receive Date: 20220310
  Receipt Date: 20220310
  Transmission Date: 20220423
  Serious: Yes (Other)
  Sender: FDA-Public Use
  Company Number: None

PATIENT
  Age: 45 Year
  Sex: Female
  Weight: 67 kg

DRUGS (2)
  1. FIASP [Suspect]
     Active Substance: INSULIN ASPART
     Indication: Type 1 diabetes mellitus
     Dosage: 36 IU
     Route: 058
     Dates: start: 20211021, end: 20211025
  2. APIDRA [Suspect]
     Active Substance: INSULIN GLULISINE
     Indication: Type 1 diabetes mellitus
     Dosage: 36 IU
     Route: 058
     Dates: start: 20210921, end: 20211020

REACTIONS (2)
  - Blood pressure increased [Recovering/Resolving]
  - Blood glucose fluctuation [Recovering/Resolving]
